FAERS Safety Report 12828345 (Version 2)
Quarter: 2017Q1

REPORT INFORMATION
  Report Type: Spontaneous
  Country: US (occurrence: US)
  Receive Date: 20161007
  Receipt Date: 20170208
  Transmission Date: 20170428
  Serious: Yes (Death, Hospitalization, Other)
  Sender: FDA-Public Use
  Company Number: US-BRISTOL-MYERS SQUIBB COMPANY-BMS-2016-080077

PATIENT
  Age: 83 Year
  Sex: Male

DRUGS (4)
  1. YERVOY [Suspect]
     Active Substance: IPILIMUMAB
     Indication: PRODUCT USED FOR UNKNOWN INDICATION
     Dosage: 925 MG, Q3WK
     Route: 042
     Dates: start: 20160714
  2. ZOFRAN [Concomitant]
     Active Substance: ONDANSETRON HYDROCHLORIDE
     Indication: NAUSEA
     Dosage: 8 MG, PRN
     Route: 065
  3. YERVOY [Suspect]
     Active Substance: IPILIMUMAB
     Indication: PRODUCT USED FOR UNKNOWN INDICATION
     Dosage: 925 MG, Q3WK
     Route: 042
     Dates: start: 20160804
  4. YERVOY [Suspect]
     Active Substance: IPILIMUMAB
     Indication: MALIGNANT MELANOMA
     Dosage: 925 MG, Q3WK
     Route: 042
     Dates: start: 20160623

REACTIONS (4)
  - Clostridium difficile infection [Unknown]
  - Intestinal perforation [Fatal]
  - Acute motor-sensory axonal neuropathy [Fatal]
  - Prescribed overdose [Unknown]

NARRATIVE: CASE EVENT DATE: 20160809
